FAERS Safety Report 8608121 (Version 3)
Quarter: 2013Q4

REPORT INFORMATION
  Report Type: Spontaneous
  Country: US (occurrence: US)
  Receive Date: 20120611
  Receipt Date: 20131129
  Transmission Date: 20140711
  Serious: Yes (Other)
  Sender: FDA-Public Use
  Company Number: US-ASTRAZENECA-2012SE35572

PATIENT
  Age: 59 Year
  Sex: Female
  Weight: 84.8 kg

DRUGS (16)
  1. NEXIUM [Suspect]
     Indication: GASTROOESOPHAGEAL REFLUX DISEASE
     Dosage: ONCE
     Route: 048
     Dates: start: 20010808, end: 20050103
  2. NEXIUM [Suspect]
     Indication: GASTROOESOPHAGEAL REFLUX DISEASE
     Route: 048
     Dates: start: 20010808
  3. PRILOSEC [Suspect]
     Indication: GASTROOESOPHAGEAL REFLUX DISEASE
     Route: 048
  4. PROTONIX [Concomitant]
     Dates: start: 20050510
  5. ZANTAC [Concomitant]
  6. PEPCID [Concomitant]
  7. MYLANTA [Concomitant]
     Dosage: TWICE DAILY
  8. ALLOPURINOL [Concomitant]
     Indication: GOUT
  9. ATENOLOL [Concomitant]
     Indication: HYPERTENSION
  10. LISINOPRIL [Concomitant]
     Indication: HYPERTENSION
  11. LOVAZA [Concomitant]
     Indication: BLOOD CHOLESTEROL
  12. SIMVASTATIN [Concomitant]
     Indication: BLOOD CHOLESTEROL
  13. TRAMADOL [Concomitant]
     Indication: PAIN
  14. TRIAMTERENE [Concomitant]
     Indication: BLOOD PRESSURE
  15. CITRACAL [Concomitant]
  16. CETIRIZINE [Concomitant]
     Indication: NASAL CONGESTION

REACTIONS (9)
  - Diabetic neuropathy [Unknown]
  - Type 2 diabetes mellitus [Unknown]
  - Osteoporosis [Unknown]
  - Multiple fractures [Unknown]
  - Foot fracture [Unknown]
  - Pain in extremity [Unknown]
  - Arthritis [Unknown]
  - Fall [Unknown]
  - Osteoarthritis [Unknown]
